FAERS Safety Report 11942163 (Version 2)
Quarter: 2016Q1

REPORT INFORMATION
  Report Type: Spontaneous
  Country: MX (occurrence: MX)
  Receive Date: 20160125
  Receipt Date: 20160224
  Transmission Date: 20160526
  Serious: Yes (Other)
  Sender: FDA-Public Use
  Company Number: MX-AMGEN-MEXSP2016006095

PATIENT
  Age: 57 Year
  Sex: Male

DRUGS (4)
  1. MIMPARA [Suspect]
     Active Substance: CINACALCET HYDROCHLORIDE
     Indication: BACK PAIN
  2. SITAGLIPTIN [Concomitant]
     Active Substance: SITAGLIPTIN
     Dosage: SPORADICALLY
     Dates: start: 2015
  3. MIMPARA [Suspect]
     Active Substance: CINACALCET HYDROCHLORIDE
     Indication: BONE DECALCIFICATION
     Dosage: UNK
     Route: 065
     Dates: start: 20160116
  4. NEPRO                              /07459601/ [Concomitant]
     Dosage: SPORADICALLY
     Dates: start: 2015

REACTIONS (3)
  - Haematochezia [Recovered/Resolved]
  - Off label use [Unknown]
  - Melaena [Recovered/Resolved]

NARRATIVE: CASE EVENT DATE: 20160116
